FAERS Safety Report 7034606-0 (Version None)
Quarter: 2010Q4

REPORT INFORMATION
  Report Type: 
  Country: None (occurrence: None)
  Receive Date: 20101008
  Receipt Date: 20100929
  Transmission Date: 20110411
  Serious: Yes (Death, Other)
  Sender: FDA-Public Use
  Company Number: DE-JNJFOC-20090708424

PATIENT
  Age: 8 Decade
  Sex: Female

DRUGS (5)
  1. ABCIXIMAB [Suspect]
     Indication: PRODUCT USED FOR UNKNOWN INDICATION
     Route: 042
  2. ABCIXIMAB [Suspect]
     Route: 022
  3. CLOPIDOGREL [Concomitant]
     Indication: PRODUCT USED FOR UNKNOWN INDICATION
  4. ACETYLSALICYLIC ACID SRT [Concomitant]
     Indication: PRODUCT USED FOR UNKNOWN INDICATION
  5. HEPARIN [Concomitant]
     Indication: PRODUCT USED FOR UNKNOWN INDICATION

REACTIONS (8)
  - BRONCHIAL HAEMORRHAGE [None]
  - INCORRECT ROUTE OF DRUG ADMINISTRATION [None]
  - MULTI-ORGAN DISORDER [None]
  - RENAL FAILURE [None]
  - RETROPERITONEAL HAEMORRHAGE [None]
  - SHOCK HAEMORRHAGIC [None]
  - URINARY BLADDER HAEMORRHAGE [None]
  - VENTRICULAR TACHYCARDIA [None]
